FAERS Safety Report 4536101-7 (Version None)
Quarter: 2004Q4

REPORT INFORMATION
  Report Type: 
  Country: None (occurrence: None)
  Receive Date: 20041214
  Receipt Date: 20030923
  Transmission Date: 20050328
  Serious: Yes (Death)
  Sender: FDA-Public Use
  Company Number: 2003178490US

PATIENT
  Age: 24 Year
  Sex: 0

DRUGS (3)
  1. XANAX [Suspect]
     Dosage: ORAL
     Route: 048
  2. ACETAMINOPHEN [Suspect]
  3. HYDROCODONE(HYDROCODONE) TABLET [Suspect]

REACTIONS (1)
  - DEATH [None]
